FAERS Safety Report 8953181 (Version 1)
Quarter: 2012Q4

REPORT INFORMATION
  Report Type: 
  Country: GB (occurrence: GB)
  Receive Date: 20121206
  Receipt Date: 20121206
  Transmission Date: 20130627
  Serious: Yes (Other)
  Sender: FDA-Public Use
  Company Number: GB-ACCORD-015455

PATIENT
  Age: 55 Year
  Sex: Male
  Weight: 169.9 kg

DRUGS (4)
  1. SIMVASTATIN [Suspect]
     Indication: DRUG USE FOR UNKNOWN INDICATION
     Dates: start: 201208, end: 201210
  2. CANDESARTAN [Concomitant]
     Dosage: Withdrawn
     Dates: start: 200803, end: 201210
  3. BENDROFLUMETHIAZIDE [Concomitant]
     Dates: start: 200804
  4. AMLODIPINE [Concomitant]
     Dosage: Started two months prior to simvastatin
     Dates: start: 201206

REACTIONS (2)
  - Renal failure acute [Recovered/Resolved]
  - Hypertension [Unknown]
